FAERS Safety Report 4630120-8 (Version None)
Quarter: 2005Q2

REPORT INFORMATION
  Report Type: 
  Country: None (occurrence: None)
  Receive Date: 20050408
  Receipt Date: 20050325
  Transmission Date: 20051028
  Serious: Yes (Life-Threatening)
  Sender: FDA-Public Use
  Company Number: FR-GLAXOSMITHKLINE-B0375864A

PATIENT
  Age: 89 Year
  Sex: Female

DRUGS (10)
  1. DEROXAT [Suspect]
     Dosage: 20MG PER DAY
     Route: 048
     Dates: start: 20041221, end: 20050124
  2. REMINYL [Suspect]
     Indication: COGNITIVE DISORDER
     Route: 048
     Dates: start: 20040101, end: 20050128
  3. ATACAND [Concomitant]
     Dosage: 8MG PER DAY
     Route: 048
  4. MODOPAR [Concomitant]
     Route: 048
  5. LASILIX [Concomitant]
     Route: 048
  6. MOPRAL [Concomitant]
     Route: 048
  7. NEO-MERCAZOLE TAB [Concomitant]
     Dosage: 10MG PER DAY
     Route: 048
     Dates: start: 20011201
  8. CORTANCYL [Concomitant]
     Dosage: 1MG PER DAY
     Route: 048
     Dates: start: 20040101
  9. FORLAX [Concomitant]
     Dosage: 1SAC PER DAY
     Route: 048
  10. COMBIVENT [Concomitant]
     Dosage: 4PUFF PER DAY
     Route: 065

REACTIONS (6)
  - ATRIOVENTRICULAR BLOCK COMPLETE [None]
  - BRADYCARDIA [None]
  - DIZZINESS [None]
  - DRUG INTERACTION [None]
  - FALL [None]
  - MALAISE [None]
